FAERS Safety Report 13345878 (Version 1)
Quarter: 2017Q1

REPORT INFORMATION
  Report Type: Spontaneous
  Country: US (occurrence: US)
  Receive Date: 20170317
  Receipt Date: 20170317
  Transmission Date: 20170428
  Serious: Yes (Hospitalization)
  Sender: FDA-Public Use
  Company Number: None

PATIENT
  Age: 83 Year
  Sex: Female
  Weight: 53.57 kg

DRUGS (9)
  1. ELIQUIS [Suspect]
     Active Substance: APIXABAN
     Indication: ANTICOAGULANT THERAPY
     Dosage: ?          QUANTITY:I V,- A/BTE/T TUNA.?CUE C;?
     Route: 048
     Dates: start: 20170108, end: 20170210
  2. METOPROLOL. [Concomitant]
     Active Substance: METOPROLOL
  3. DOCUSATE [Concomitant]
     Active Substance: DOCUSATE
  4. VALSARTAN. [Concomitant]
     Active Substance: VALSARTAN
  5. SENNA [Concomitant]
     Active Substance: SENNA LEAF\SENNOSIDES\SENNOSIDES A AND B
  6. PANTOPROZOLE [Concomitant]
  7. SIMVASTATIN. [Concomitant]
     Active Substance: SIMVASTATIN
  8. MILK OF MAGNESIA [Concomitant]
     Active Substance: MAGNESIUM HYDROXIDE
  9. VITAMIN D [Concomitant]
     Active Substance: CHOLECALCIFEROL

REACTIONS (1)
  - Haematochezia [None]

NARRATIVE: CASE EVENT DATE: 20170210
